FAERS Safety Report 8486331-7 (Version None)
Quarter: 2012Q3

REPORT INFORMATION
  Report Type: 
  Country: None (occurrence: None)
  Receive Date: 20120703
  Receipt Date: 20120626
  Transmission Date: 20120928
  Serious: Yes (Death)
  Sender: FDA-Public Use
  Company Number: US-GLAXOSMITHKLINE-A0973895A

PATIENT
  Age: 65 Year
  Sex: Female

DRUGS (15)
  1. MOBIC [Concomitant]
  2. SPIRONOLACTONE [Concomitant]
  3. SYNTHROID [Concomitant]
  4. NEXIUM [Concomitant]
  5. PREDNISONE [Concomitant]
  6. MORPHINE [Concomitant]
  7. KLOR-CON [Concomitant]
  8. BUMETANIDE [Concomitant]
  9. SILDENAFIL [Concomitant]
  10. FLOLAN [Suspect]
     Indication: PULMONARY ARTERIAL HYPERTENSION
     Dosage: 49.5NGKM UNKNOWN
     Route: 042
     Dates: start: 20090904
  11. METOLAZONE [Concomitant]
  12. GLEEVEC [Concomitant]
  13. PAXIL [Concomitant]
  14. TRACLEER [Concomitant]
  15. TYLENOL W/ CODEINE [Concomitant]

REACTIONS (1)
  - DEATH [None]
